FAERS Safety Report 6149074-0 (Version None)
Quarter: 2009Q2

REPORT INFORMATION
  Report Type: 
  Country: None (occurrence: None)
  Receive Date: 20090409
  Receipt Date: 20090330
  Transmission Date: 20091009
  Serious: Yes (Hospitalization)
  Sender: FDA-Public Use
  Company Number: US-WYE-H08435709

PATIENT
  Sex: Male
  Weight: 136.2 kg

DRUGS (14)
  1. PRISTIQ [Suspect]
     Route: 048
     Dates: start: 20080129, end: 20090302
  2. ZESTRIL [Concomitant]
     Indication: BLOOD PRESSURE ABNORMAL
     Route: 048
  3. PLAVIX [Concomitant]
     Route: 048
  4. ZOCOR [Concomitant]
     Indication: BLOOD CHOLESTEROL ABNORMAL
     Route: 048
  5. ALLOPURINOL [Concomitant]
     Route: 065
  6. PRIMIDONE [Concomitant]
     Route: 065
  7. NOVOLOG [Concomitant]
     Dosage: SLIDING SCALE (DOSE UNKNOWN)
     Route: 065
  8. NASONEX [Concomitant]
     Dosage: 2 SPRAYS DAILY
     Route: 045
  9. PROVENTIL [Concomitant]
     Dosage: 2 SPRAYS EVERY FOUR TO SIX HOURS
     Route: 055
  10. GABAPENTIN [Concomitant]
     Route: 065
  11. LANTUS [Concomitant]
     Dosage: 60 UNIT EVERY 1 DAY
     Route: 065
  12. DOXAZOSIN MESYLATE [Concomitant]
     Route: 065
  13. REGLAN [Concomitant]
     Indication: GASTROOESOPHAGEAL REFLUX DISEASE
     Route: 048
  14. LASIX [Concomitant]
     Route: 065

REACTIONS (1)
  - GASTRIC DISORDER [None]
